FAERS Safety Report 4397539-4 (Version None)
Quarter: 2004Q2

REPORT INFORMATION
  Report Type: 
  Country: None (occurrence: None)
  Receive Date: 20040621
  Receipt Date: 20040107
  Transmission Date: 20050107
  Serious: Yes (Death)
  Sender: FDA-Public Use
  Company Number: USA-2004-0012372

PATIENT
  Age: 37 Year
  Sex: Male
  Weight: 101.1 kg

DRUGS (5)
  1. OXYCODONE HCL [Suspect]
     Dosage: UNK UNK, UNK, UNKNOWN
     Route: 065
  2. METHADONE (METHADONE) [Suspect]
     Dosage: UNK UNK, UNK, UNKNOWN
     Route: 065
  3. AMITRIPTYLINE (AMITRIPTYLINE) [Suspect]
     Dosage: UNK, UNK, UNK, UNKNOWN
     Route: 065
  4. NORTRIPTYLINE (NORTRIPTYLINE) [Suspect]
     Dosage: UNK UNK, UNK, UNKNOWN
     Route: 065
  5. CLONAZEPAM [Suspect]
     Dosage: UNK UNK, UNK, UNKNOWN
     Route: 065

REACTIONS (1)
  - MULTIPLE DRUG OVERDOSE ACCIDENTAL [None]
